FAERS Safety Report 12455759 (Version 1)
Quarter: 2016Q2

REPORT INFORMATION
  Report Type: Spontaneous
  Country: MX (occurrence: MX)
  Receive Date: 20160610
  Receipt Date: 20160610
  Transmission Date: 20160815
  Serious: Yes (Other)
  Sender: FDA-Public Use
  Company Number: MX-SA-2016SA107573

PATIENT
  Sex: Male
  Weight: 75 kg

DRUGS (5)
  1. AVALIDE [Suspect]
     Active Substance: HYDROCHLOROTHIAZIDE\IRBESARTAN
     Indication: HYPERTENSION
     Dosage: STRENGTH: 300MG+12.5G
     Route: 048
     Dates: start: 2006
  2. ASPIRIN. [Concomitant]
     Active Substance: ASPIRIN
     Indication: CARDIOVASCULAR EVENT PROPHYLAXIS
     Dosage: STRENGTH: 100 MG
     Route: 048
     Dates: start: 2006
  3. AVALIDE [Suspect]
     Active Substance: HYDROCHLOROTHIAZIDE\IRBESARTAN
     Indication: HYPERTENSION
     Dosage: STRENGTH:150MG+12.5MG
     Route: 048
     Dates: start: 2006, end: 2006
  4. TRAMADOL/PARACETAMOL [Concomitant]
     Indication: SPINAL COLUMN INJURY
     Dosage: STRENGTH: 100MG+500 MG
     Route: 048
     Dates: start: 1996
  5. PREGABALIN. [Concomitant]
     Active Substance: PREGABALIN
     Indication: SPINAL COLUMN INJURY
     Dosage: STRENGTH: 75 MG
     Route: 048
     Dates: start: 1996

REACTIONS (4)
  - Deep vein thrombosis [Recovered/Resolved]
  - Xerophthalmia [Not Recovered/Not Resolved]
  - Hypertension [Not Recovered/Not Resolved]
  - Dizziness [Recovered/Resolved]

NARRATIVE: CASE EVENT DATE: 2006
